FAERS Safety Report 21709684 (Version 1)
Quarter: 2022Q4

REPORT INFORMATION
  Report Type: Spontaneous
  Country: HR (occurrence: HR)
  Receive Date: 20221210
  Receipt Date: 20221210
  Transmission Date: 20230113
  Serious: Yes (Other)
  Sender: FDA-Public Use
  Company Number: None

PATIENT
  Sex: Female

DRUGS (2)
  1. QUETIAPINE [Suspect]
     Active Substance: QUETIAPINE
     Indication: Product used for unknown indication
     Dosage: UNIT DOSE : 2500 MG   , FREQUENCY TIME :  1 DAY  , DURATION :  1 DAY
     Dates: start: 20221029, end: 20221029
  2. QUETIAPINE [Suspect]
     Active Substance: QUETIAPINE
     Dosage: UNIT DOSE : 5000 MG  , FREQUENCY TIME : 1 DAY  , DURATION :  1 DAY
     Dates: start: 20221029, end: 20221029

REACTIONS (2)
  - Suicide attempt [Unknown]
  - Intentional overdose [Unknown]

NARRATIVE: CASE EVENT DATE: 20221029
